FAERS Safety Report 6064684-7 (Version None)
Quarter: 2009Q1

REPORT INFORMATION
  Report Type: 
  Country: None (occurrence: None)
  Receive Date: 20090204
  Receipt Date: 20080606
  Transmission Date: 20090719
  Serious: No
  Sender: FDA-Public Use
  Company Number: A0729429A

PATIENT
  Age: 65 Year
  Sex: Female
  Weight: 100.9 kg

DRUGS (1)
  1. ARIXTRA [Suspect]
     Dosage: 2.5MG UNKNOWN
     Route: 058

REACTIONS (1)
  - WOUND SECRETION [None]
